FAERS Safety Report 4902630-7 (Version None)
Quarter: 2006Q1

REPORT INFORMATION
  Report Type: 
  Country: None (occurrence: None)
  Receive Date: 20060207
  Receipt Date: 20050818
  Transmission Date: 20060701
  Serious: Yes (Life-Threatening, Hospitalization, Other)
  Sender: FDA-Public Use
  Company Number: PR-ABBOTT-05P-131-0308692-00

PATIENT
  Sex: Male

DRUGS (19)
  1. TARKA (COMPARATOR) [Suspect]
     Indication: HYPERTENSION
     Route: 048
     Dates: start: 20050210, end: 20050726
  2. TARKA (COMPARATOR) [Suspect]
     Route: 048
     Dates: start: 20050818
  3. BUMETANIDE [Concomitant]
     Indication: HYPERTENSION
     Dates: start: 20030101, end: 20050113
  4. POTASSIUM [Concomitant]
     Indication: BLOOD POTASSIUM DECREASED
     Dates: start: 20010101
  5. ALPRAZOLAM [Concomitant]
     Indication: ANXIETY
     Dates: start: 20041101
  6. BENZYLPENICILLIN SODIUM [Concomitant]
     Indication: TOOTH EXTRACTION
     Dates: start: 20050205, end: 20050209
  7. ACETYLSALICYLIC ACID SRT [Concomitant]
     Indication: PROPHYLAXIS
     Dates: start: 19960101
  8. RAMIPRIL [Concomitant]
     Indication: HYPERTENSION
     Dates: start: 20010101, end: 20050113
  9. CRESTOR [Concomitant]
     Indication: DYSLIPIDAEMIA
     Dates: start: 20031201
  10. METFORMIN HYDROCHLORIDE [Concomitant]
     Indication: DIABETES MELLITUS NON-INSULIN-DEPENDENT
     Dates: start: 20010101
  11. INSULIN LISPRO [Concomitant]
     Indication: DIABETES MELLITUS NON-INSULIN-DEPENDENT
     Dosage: 35/25 U/ML
     Dates: start: 19980101, end: 20050701
  12. WARFARIN SODIUM [Concomitant]
     Indication: CORONARY ARTERY DISEASE
     Dates: start: 20030101
  13. DIGOXIN [Concomitant]
     Indication: ATRIAL FIBRILLATION
     Dates: start: 20050701
  14. ISOPHANE INSULIN [Concomitant]
     Indication: DIABETES MELLITUS NON-INSULIN-DEPENDENT
     Dates: start: 20050701
  15. INSULIN [Concomitant]
     Indication: DIABETES MELLITUS
     Dates: start: 20050701
  16. MOMETASONE FUROATE [Concomitant]
     Indication: DERMATITIS
     Dosage: 1 APPLICATION
     Dates: start: 20050328, end: 20050418
  17. ITRACONAZOLE [Concomitant]
     Indication: DERMATITIS
     Dates: start: 20050419, end: 20050423
  18. BUTENAFINE HYDROCHLORIDE [Concomitant]
     Indication: DERMATITIS
     Dosage: 1 APPLICATION
     Dates: start: 20050419, end: 20050515
  19. PANTOPRAZOLE [Concomitant]
     Indication: GASTRITIS
     Dates: start: 20050701

REACTIONS (8)
  - ANAEMIA [None]
  - CARDIAC FAILURE CONGESTIVE [None]
  - DIZZINESS [None]
  - GASTROINTESTINAL HAEMORRHAGE [None]
  - HYPERGLYCAEMIC HYPEROSMOLAR NONKETOTIC SYNDROME [None]
  - INTERNATIONAL NORMALISED RATIO INCREASED [None]
  - PLEURAL EFFUSION [None]
  - SYNCOPE [None]
